FAERS Safety Report 6797909-0 (Version None)
Quarter: 2010Q2

REPORT INFORMATION
  Report Type: 
  Country: None (occurrence: None)
  Receive Date: 20100623
  Receipt Date: 20100615
  Transmission Date: 20101027
  Serious: Yes (Hospitalization)
  Sender: FDA-Public Use
  Company Number: UTC-001175

PATIENT
  Age: 67 Year
  Sex: Male
  Weight: 105 kg

DRUGS (18)
  1. TYVASO [Suspect]
     Dosage: 144 MCG (36 MCG, 4 IN 1 D), INHALATION
     Route: 055
     Dates: start: 20100405
  2. COLCHICINE (COLCHICINE) (TABLETS) [Concomitant]
  3. FUROSEMIDE [Concomitant]
  4. RISPERIDONE [Concomitant]
  5. SIMVASTATIN [Concomitant]
  6. VENTOLIN [Concomitant]
  7. VERAPAMIL [Concomitant]
  8. SYMBICORT [Concomitant]
  9. POTASSIUM CHLORDE (POTASSIUM CHLORIDE) [Concomitant]
  10. GLIZIPIDE XL (GLIPIZIDE) [Concomitant]
  11. ZAROXOLYN [Concomitant]
  12. COUMADIN [Concomitant]
  13. FOSINOPRIL SODIUM [Concomitant]
  14. OXYGEN (OXYGEN) [Concomitant]
  15. JANUVIA [Concomitant]
  16. LIPITOR [Concomitant]
  17. ASPIRIN [Concomitant]
  18. ADCIRCA (TADALAFIL) [Concomitant]

REACTIONS (1)
  - CEREBROVASCULAR ACCIDENT [None]
